FAERS Safety Report 7610649-0 (Version None)
Quarter: 2011Q3

REPORT INFORMATION
  Report Type: 
  Country: None (occurrence: None)
  Receive Date: 20110715
  Receipt Date: 20110701
  Transmission Date: 20111222
  Serious: Yes (Hospitalization, Other)
  Sender: FDA-Public Use
  Company Number: US-BAYER-2010-001677

PATIENT
  Sex: Female
  Weight: 58.957 kg

DRUGS (6)
  1. YASMIN [Suspect]
     Indication: ACNE
     Dosage: UNK
     Route: 048
     Dates: start: 20030701, end: 20080101
  2. YAZ [Suspect]
     Indication: ACNE
     Dosage: UNK
     Route: 048
     Dates: start: 20080101, end: 20090801
  3. YAZ [Suspect]
     Dosage: UNK
     Route: 048
     Dates: start: 20010101, end: 20090101
  4. ZOLOFT [Concomitant]
     Indication: HEART RATE INCREASED
     Dosage: UNK
     Dates: start: 20000101, end: 20100101
  5. YASMIN [Suspect]
     Dosage: UNK
     Route: 048
     Dates: start: 20010101, end: 20090101
  6. DILTIAZEM CD [Concomitant]
     Dosage: 120 MG, QD

REACTIONS (3)
  - VENTRICULAR TACHYCARDIA [None]
  - ARRHYTHMIA [None]
  - PALPITATIONS [None]
